FAERS Safety Report 6480271-0 (Version None)
Quarter: 2009Q4

REPORT INFORMATION
  Report Type: 
  Country: None (occurrence: None)
  Receive Date: 20091202
  Receipt Date: 20091120
  Transmission Date: 20100525
  Serious: Yes (Hospitalization, Other)
  Sender: FDA-Public Use
  Company Number: WAES 0911USA04135

PATIENT
  Age: 63 Year
  Sex: Female

DRUGS (2)
  1. CAP VORINOSTAT UNK [Suspect]
     Dosage: 400 MG/DAILY/PO
     Route: 048
     Dates: start: 20091030, end: 20091112
  2. VELCADE [Suspect]
     Dosage: 2.7 MG/DAILY/IV
     Route: 042
     Dates: start: 20081030, end: 20091109

REACTIONS (6)
  - ACUTE MYELOID LEUKAEMIA [None]
  - FALL [None]
  - LEUKAEMIC INFILTRATION BRAIN [None]
  - MALIGNANT NEOPLASM PROGRESSION [None]
  - PERIPHERAL MOTOR NEUROPATHY [None]
  - SIMPLE PARTIAL SEIZURES [None]
